FAERS Safety Report 5096116-X (Version None)
Quarter: 2006Q3

REPORT INFORMATION
  Report Type: 
  Country: None (occurrence: None)
  Receive Date: 20060731
  Receipt Date: 20060428
  Transmission Date: 20061208
  Serious: No
  Sender: FDA-Public Use
  Company Number: 2006PV012904

PATIENT
  Age: 63 Year
  Sex: Female

DRUGS (11)
  1. BYETTA [Suspect]
     Indication: DIABETES MELLITUS NON-INSULIN-DEPENDENT
     Dosage: SEE IMAGE
     Route: 058
     Dates: start: 20060401, end: 20060509
  2. BYETTA [Suspect]
     Indication: DIABETES MELLITUS NON-INSULIN-DEPENDENT
     Dosage: SEE IMAGE
     Route: 058
     Dates: start: 20060510
  3. GLIPIZIDE [Concomitant]
  4. AVANDIA [Concomitant]
  5. GLUCOPHAGE [Concomitant]
  6. RANITIDINE [Concomitant]
  7. ECOTRIN [Concomitant]
  8. PLAVIX [Concomitant]
  9. AN UNKNOWN FLUID PILL THAT STARTS WITH A T [Concomitant]
  10. UNKNOWN PILLS FOR HER HEART [Concomitant]
  11. UNKNOWN PILLS FOR BLOOD PRESSURE [Concomitant]

REACTIONS (7)
  - BLOOD GLUCOSE INCREASED [None]
  - CONSTIPATION [None]
  - ERUCTATION [None]
  - MICTURITION FREQUENCY DECREASED [None]
  - NAUSEA [None]
  - URINARY INCONTINENCE [None]
  - VOMITING [None]
